FAERS Safety Report 4955176-4 (Version None)
Quarter: 2006Q1

REPORT INFORMATION
  Report Type: 
  Country: None (occurrence: None)
  Receive Date: 20060328
  Receipt Date: 20060316
  Transmission Date: 20060701
  Serious: Yes (Other)
  Sender: FDA-Public Use
  Company Number: US-JNJFOC-20060304251

PATIENT
  Sex: Male

DRUGS (10)
  1. INFLIXIMAB [Suspect]
     Indication: RHEUMATOID ARTHRITIS
     Route: 042
  2. METHOTREXATE [Concomitant]
  3. FOSAMAX [Concomitant]
  4. NIACIN [Concomitant]
  5. LIPITOR [Concomitant]
  6. PREVACID [Concomitant]
  7. PREDNISONE TAB [Concomitant]
  8. HUMIRA [Concomitant]
  9. VIOXX [Concomitant]
  10. LEUCOVORIN [Concomitant]

REACTIONS (1)
  - BONE NEOPLASM MALIGNANT [None]
